FAERS Safety Report 23116441 (Version 1)
Quarter: 2023Q4

REPORT INFORMATION
  Report Type: Spontaneous
  Country: US (occurrence: None)
  Receive Date: 20231027
  Receipt Date: 20231027
  Transmission Date: 20240110
  Serious: No
  Sender: FDA-Public Use
  Company Number: None

PATIENT
  Age: 42 Year
  Sex: Female

DRUGS (1)
  1. LITHIUM [Suspect]
     Active Substance: LITHIUM
     Indication: Bipolar I disorder

REACTIONS (1)
  - Treatment failure [None]

NARRATIVE: CASE EVENT DATE: 20231027
